FAERS Safety Report 10029658 (Version 1)
Quarter: 2014Q1

REPORT INFORMATION
  Report Type: Spontaneous
  Country: US (occurrence: None)
  Receive Date: 20140321
  Receipt Date: 20140321
  Transmission Date: 20141002
  Serious: Yes (Disabling, Other)
  Sender: FDA-Public Use
  Company Number: None

PATIENT
  Age: 57 Year
  Sex: Female
  Weight: 54.43 kg

DRUGS (2)
  1. VENLAFAXINE [Suspect]
     Indication: BIPOLAR II DISORDER
     Dosage: 5 CAPSULES A DAY 4 IN  THE AM ONE IN PM
     Route: 048
     Dates: start: 20090218
  2. VENLAFAXINE [Suspect]
     Indication: DEPRESSION
     Dosage: 5 CAPSULES A DAY 4 IN  THE AM ONE IN PM
     Route: 048
     Dates: start: 20090218

REACTIONS (3)
  - Crying [None]
  - Fatigue [None]
  - Irritability [None]
